FAERS Safety Report 4868844-X (Version None)
Quarter: 2005Q4

REPORT INFORMATION
  Report Type: 
  Country: None (occurrence: None)
  Receive Date: 20051223
  Receipt Date: 20051213
  Transmission Date: 20060501
  Serious: Yes (Life-Threatening, Hospitalization)
  Sender: FDA-Public Use
  Company Number: 2005125297

PATIENT
  Age: 59 Year
  Sex: Male
  Weight: 65 kg

DRUGS (6)
  1. VFEND [Suspect]
     Indication: PULMONARY MYCOSIS
     Dosage: 400 MG (2 IN 1 D), INTRAVENOUS
     Route: 042
     Dates: start: 20050826, end: 20050830
  2. CLINDAMYCIN PHOSPHATE [Suspect]
     Indication: LUNG INFECTION
     Dosage: 1800 MG (600 MG, 3 IN 1 D), INTRAVENOUS
     Route: 042
     Dates: start: 20050822, end: 20050830
  3. TIENAM (CILASTATIN, IMIPENEM) [Suspect]
     Indication: LUNG INFECTION
     Dosage: 1500 MG (3 IN 1 D), ORAL
     Route: 048
     Dates: start: 20050822, end: 20050830
  4. LOXONIN (LOXOPROFEN SODIUM) [Suspect]
     Indication: PYREXIA
     Dosage: 180 MG (3 IN 1 D), ORAL
     Route: 048
     Dates: start: 20050823, end: 20050903
  5. VENOGLOBULIN [Suspect]
     Indication: LUNG INFECTION
     Dosage: 2500 MG (2 I N1 D), INTRAVENOUS
     Route: 042
     Dates: start: 20050822, end: 20050824
  6. MODACIN (CEFTAZIDIME) [Concomitant]

REACTIONS (10)
  - DEHYDRATION [None]
  - DIABETES MELLITUS INADEQUATE CONTROL [None]
  - FUNGAL INFECTION [None]
  - HAEMODIALYSIS [None]
  - HEPATIC FUNCTION ABNORMAL [None]
  - HYPERGLYCAEMIA [None]
  - LUNG INFECTION [None]
  - PNEUMONIA [None]
  - RENAL FAILURE ACUTE [None]
  - SPUTUM CULTURE POSITIVE [None]
